FAERS Safety Report 7214067-9 (Version None)
Quarter: 2011Q1

REPORT INFORMATION
  Report Type: 
  Country: None (occurrence: None)
  Receive Date: 20110107
  Receipt Date: 20101229
  Transmission Date: 20110831
  Serious: No
  Sender: FDA-Public Use
  Company Number: US-BIOGENIDEC-2010BI045245

PATIENT
  Age: 41 Year
  Sex: Female
  Weight: 109 kg

DRUGS (2)
  1. AVONEX [Suspect]
     Indication: MULTIPLE SCLEROSIS
     Route: 030
     Dates: start: 20091001
  2. AVONEX [Suspect]
     Route: 030
     Dates: start: 20000101, end: 20030101

REACTIONS (2)
  - CARPAL TUNNEL SYNDROME [None]
  - PAIN IN EXTREMITY [None]
